FAERS Safety Report 13307573 (Version 1)
Quarter: 2017Q1

REPORT INFORMATION
  Report Type: Spontaneous
  Country: TW (occurrence: TW)
  Receive Date: 20170308
  Receipt Date: 20170308
  Transmission Date: 20170428
  Serious: Yes (Death)
  Sender: FDA-Public Use
  Company Number: TW-BAYER-2017-042903

PATIENT
  Age: 58 Year
  Sex: Male

DRUGS (2)
  1. NEXAVAR [Suspect]
     Active Substance: SORAFENIB
     Indication: HEPATOCELLULAR CARCINOMA
     Dosage: UNK
     Route: 048
     Dates: start: 20150713
  2. NEXAVAR [Suspect]
     Active Substance: SORAFENIB
     Indication: PORTAL VEIN THROMBOSIS

REACTIONS (4)
  - Infection [Fatal]
  - Skin lesion [None]
  - Multiple organ dysfunction syndrome [Fatal]
  - Palmar-plantar erythrodysaesthesia syndrome [None]

NARRATIVE: CASE EVENT DATE: 201508
